FAERS Safety Report 7098781-4 (Version None)
Quarter: 2010Q4

REPORT INFORMATION
  Report Type: 
  Country: None (occurrence: None)
  Receive Date: 20101112
  Receipt Date: 20101103
  Transmission Date: 20110411
  Serious: Yes (Death)
  Sender: FDA-Public Use
  Company Number: GB-ROCHE-738456

PATIENT

DRUGS (3)
  1. CAPECITABINE [Suspect]
     Indication: GASTROINTESTINAL CARCINOMA
     Route: 065
  2. EPIRUBICIN [Suspect]
     Indication: GASTROINTESTINAL CARCINOMA
     Route: 065
  3. OXALIPLATIN [Suspect]
     Indication: GASTROINTESTINAL CARCINOMA
     Route: 065

REACTIONS (1)
  - DIARRHOEA [None]
